FAERS Safety Report 11801587 (Version 1)
Quarter: 2015Q4

REPORT INFORMATION
  Report Type: Spontaneous
  Country: CO (occurrence: CO)
  Receive Date: 20151204
  Receipt Date: 20151204
  Transmission Date: 20160305
  Serious: Yes (Hospitalization)
  Sender: FDA-Public Use
  Company Number: CO-NOVOPROD-472095

PATIENT
  Age: 40 Year
  Sex: Female

DRUGS (7)
  1. XELJANZ [Suspect]
     Active Substance: TOFACITINIB CITRATE
     Indication: RHEUMATOID ARTHRITIS
     Dosage: 5 MG, BID
     Route: 048
     Dates: start: 2014, end: 201508
  2. VICTOZA [Suspect]
     Active Substance: LIRAGLUTIDE
     Indication: OBESITY
     Dosage: 0.6 MG, QD
     Route: 065
  3. PREDNISOLONE. [Concomitant]
     Active Substance: PREDNISOLONE
     Indication: INFLAMMATION
     Dosage: 5 MG, QD (HALF THE DOSGE FORM (DF)
     Route: 048
  4. PREDNISOLONE. [Concomitant]
     Active Substance: PREDNISOLONE
     Dosage: UNK
     Route: 048
  5. VICTOZA [Suspect]
     Active Substance: LIRAGLUTIDE
     Indication: OFF LABEL USE
     Dosage: 1.2 MG
     Route: 065
     Dates: start: 201511, end: 20151107
  6. REMICADE [Concomitant]
     Active Substance: INFLIXIMAB
  7. XELJANZ [Suspect]
     Active Substance: TOFACITINIB CITRATE
     Dosage: UNK
     Route: 048

REACTIONS (7)
  - Inflammation [Recovered/Resolved]
  - Inflammation [Recovered/Resolved]
  - Off label use [Unknown]
  - Memory impairment [Unknown]
  - Abdominal pain [Recovered/Resolved]
  - Diarrhoea [Unknown]
  - Headache [Recovered/Resolved]

NARRATIVE: CASE EVENT DATE: 201408
